FAERS Safety Report 9133909 (Version 2)
Quarter: 2013Q2

REPORT INFORMATION
  Report Type: Spontaneous
  Country: US (occurrence: US)
  Receive Date: 20130127
  Receipt Date: 20130515
  Transmission Date: 20140414
  Serious: No
  Sender: FDA-Public Use
  Company Number: US-009507513-1301USA004297

PATIENT
  Age: 27 Year
  Sex: Female
  Weight: 165.53 kg

DRUGS (2)
  1. IMPLANON [Suspect]
     Indication: CONTRACEPTION
     Dosage: 1 ROD
     Route: 058
     Dates: start: 20100709, end: 20130103
  2. DOXYCYCLINE [Concomitant]
     Dosage: 100 MG, BID

REACTIONS (2)
  - Metrorrhagia [Recovered/Resolved]
  - Device breakage [Unknown]
